FAERS Safety Report 24533589 (Version 2)
Quarter: 2025Q1

REPORT INFORMATION
  Report Type: Report from Study
  Country: BR (occurrence: BR)
  Receive Date: 20241022
  Receipt Date: 20250103
  Transmission Date: 20250409
  Serious: Yes (Other)
  Sender: BAYER HEALTHCARE PHARMACEUTICALS INC.
  Company Number: BR-BAYER-2024A146076

PATIENT
  Age: 61 Year
  Sex: Female

DRUGS (2)
  1. NEXAVAR [Suspect]
     Active Substance: SORAFENIB
     Indication: Hepatic cancer
     Dosage: 400 MG, QD
     Dates: start: 20240901
  2. NEXAVAR [Suspect]
     Active Substance: SORAFENIB
     Indication: Metastases to adrenals
     Dosage: 200 MG, QD

REACTIONS (11)
  - Swelling face [Recovered/Resolved]
  - Head discomfort [Recovered/Resolved]
  - Erythema [Recovered/Resolved]
  - Skin laceration [Recovered/Resolved]
  - Pruritus [Recovered/Resolved]
  - Pneumonia [Recovering/Resolving]
  - Influenza [Recovering/Resolving]
  - Cough [Not Recovered/Not Resolved]
  - Chest pain [Recovering/Resolving]
  - Musculoskeletal chest pain [Recovering/Resolving]
  - Off label use [None]

NARRATIVE: CASE EVENT DATE: 20240901
